FAERS Safety Report 15305886 (Version 1)
Quarter: 2018Q3

REPORT INFORMATION
  Report Type: Spontaneous
  Country: US (occurrence: US)
  Receive Date: 20180810
  Receipt Date: 20180810
  Transmission Date: 20181010
  Serious: Yes (Life-Threatening, Hospitalization)
  Sender: FDA-Public Use
  Company Number: None

PATIENT
  Age: 31 Year
  Sex: Female
  Weight: 67.13 kg

DRUGS (5)
  1. HUMALOG [Concomitant]
     Active Substance: INSULIN LISPRO
  2. TOUJEO [Concomitant]
     Active Substance: INSULIN GLARGINE
  3. PARAGARD T 380A [Suspect]
     Active Substance: COPPER
     Indication: CONTRACEPTION
     Dates: start: 20170201, end: 20180611
  4. BACTRIM [Concomitant]
     Active Substance: SULFAMETHOXAZOLE\TRIMETHOPRIM
  5. ALEVE [Concomitant]
     Active Substance: NAPROXEN SODIUM

REACTIONS (9)
  - Beta haemolytic streptococcal infection [None]
  - Ovarian oedema [None]
  - Pelvic inflammatory disease [None]
  - Gastrointestinal oedema [None]
  - Bile output abnormal [None]
  - Ovarian enlargement [None]
  - Urethral disorder [None]
  - Fallopian tube disorder [None]
  - Swelling [None]

NARRATIVE: CASE EVENT DATE: 20180609
